FAERS Safety Report 10206860 (Version 2)
Quarter: 2014Q2

REPORT INFORMATION
  Report Type: Spontaneous
  Country: DK (occurrence: DK)
  Receive Date: 20140530
  Receipt Date: 20140620
  Transmission Date: 20141212
  Serious: Yes (Hospitalization)
  Sender: FDA-Public Use
  Company Number: DK-ROCHE-1408798

PATIENT
  Age: 61 Year
  Sex: Female
  Weight: 35 kg

DRUGS (9)
  1. MABTHERA [Suspect]
     Indication: B-CELL LYMPHOMA
     Route: 042
     Dates: start: 20140515, end: 20140515
  2. MABTHERA [Suspect]
     Route: 042
     Dates: start: 201406
  3. PANODIL [Concomitant]
     Indication: PREMEDICATION
     Route: 048
     Dates: start: 20140515, end: 20140515
  4. ONDANSETRON [Concomitant]
     Indication: PREMEDICATION
     Route: 048
     Dates: start: 20140515, end: 20140516
  5. TAVEGYL [Concomitant]
     Indication: PREMEDICATION
     Route: 048
     Dates: start: 20140515, end: 20140516
  6. PREDNISOLONE [Concomitant]
     Route: 048
     Dates: start: 20140515, end: 20140519
  7. ALLOPURINOL [Concomitant]
     Route: 048
     Dates: start: 20140515, end: 20140521
  8. CYCLOPHOSPHAMIDE [Concomitant]
     Route: 065
     Dates: start: 20140515
  9. ONCOVIN [Concomitant]
     Route: 065
     Dates: start: 20140515

REACTIONS (5)
  - Respiratory depression [Recovered/Resolved]
  - Oxygen saturation decreased [Recovered/Resolved]
  - Bronchospasm [Recovered/Resolved]
  - Hypotension [Recovered/Resolved]
  - Pyrexia [Recovered/Resolved]
